FAERS Safety Report 25393468 (Version 2)
Quarter: 2025Q2

REPORT INFORMATION
  Report Type: Spontaneous
  Country: NL (occurrence: NL)
  Receive Date: 20250604
  Receipt Date: 20250613
  Transmission Date: 20250717
  Serious: Yes (Life-Threatening, Hospitalization)
  Sender: SAMSUNG BIOEPIS
  Company Number: None

PATIENT
  Age: 62 Year
  Sex: Female
  Weight: 97 kg

DRUGS (2)
  1. ADALIMUMAB [Suspect]
     Active Substance: ADALIMUMAB
     Indication: Crohn^s disease
     Dosage: 40 MG PER 2 WEEKS;
     Dates: start: 20240201
  2. COMIRNATY (BNT162B2 OMICRON (KP.2)) [Suspect]
     Active Substance: BNT162B2 OMICRON (KP.2)
     Indication: COVID-19 immunisation
     Dates: start: 20241001

REACTIONS (1)
  - Pulmonary embolism [Recovered/Resolved]
